FAERS Safety Report 19316653 (Version 1)
Quarter: 2021Q2

REPORT INFORMATION
  Report Type: Spontaneous
  Country: ES (occurrence: ES)
  Receive Date: 20210527
  Receipt Date: 20210527
  Transmission Date: 20210717
  Serious: Yes (Hospitalization)
  Sender: FDA-Public Use
  Company Number: ES-TEVA-2021-ES-1915445

PATIENT
  Age: 90 Year
  Sex: Male

DRUGS (3)
  1. QUETIAPINA (1136A) [Suspect]
     Active Substance: QUETIAPINE
     Indication: COGNITIVE DISORDER
     Dosage: 25 MG, THERAPY START DATE: ASKU
     Route: 048
  2. LORAZEPAM (1864A) [Interacting]
     Active Substance: LORAZEPAM
     Indication: COGNITIVE DISORDER
     Dosage: 1 MG
     Route: 048
     Dates: start: 20210412, end: 20210412
  3. DEPRAX 100 MG COMPRIMIDOS RECUBIERTOS CON PELICULA EFG , 30 COMPRIMIDO [Interacting]
     Active Substance: TRAZODONE HYDROCHLORIDE
     Indication: COGNITIVE DISORDER
     Dosage: 100 MG, THERAPY START DATE: ASKU
     Route: 048
     Dates: end: 20210412

REACTIONS (3)
  - Disorientation [Recovered/Resolved]
  - Drug interaction [Unknown]
  - Incorrect dose administered [Recovered/Resolved]

NARRATIVE: CASE EVENT DATE: 20210412
